FAERS Safety Report 9641164 (Version 1)
Quarter: 2013Q4

REPORT INFORMATION
  Report Type: Spontaneous
  Country: AU (occurrence: AU)
  Receive Date: 20131023
  Receipt Date: 20131023
  Transmission Date: 20140711
  Serious: Yes (Hospitalization, Other)
  Sender: FDA-Public Use
  Company Number: AU-PFIZER INC-2013299173

PATIENT
  Sex: 0

DRUGS (1)
  1. EFEXOR XR [Suspect]
     Dosage: 75 MG, UNK

REACTIONS (2)
  - Subdural haematoma [Unknown]
  - Basal ganglia stroke [Unknown]
